FAERS Safety Report 8816723 (Version 2)
Quarter: 2012Q4

REPORT INFORMATION
  Report Type: 
  Country: US (occurrence: None)
  Receive Date: 20121001
  Receipt Date: 20121010
  Transmission Date: 20130627
  Serious: Yes (Death)
  Sender: FDA-Public Use
  Company Number: DKLU1084833

PATIENT
  Age: 3 Year
  Sex: Female

DRUGS (5)
  1. SABRIL [Suspect]
     Indication: INFANTILE SPASMS
     Route: 048
     Dates: start: 20100318
  2. SABRIL [Suspect]
     Indication: INFANTILE SPASMS
     Route: 048
     Dates: start: 20100429
  3. KEPPRA (LEVETIRACETAM) [Concomitant]
  4. TOPAMAX (TOPIRAMATE) [Concomitant]
  5. PHENOBARBITAL (PHENOBARBITAL) [Concomitant]

REACTIONS (3)
  - Death [None]
  - Acute respiratory distress syndrome [None]
  - Pneumonia [None]
